FAERS Safety Report 9580557 (Version 1)
Quarter: 2013Q3

REPORT INFORMATION
  Report Type: Spontaneous
  Country: US (occurrence: None)
  Receive Date: 20130916
  Receipt Date: 20130916
  Transmission Date: 20140515
  Serious: Yes (Hospitalization, Other)
  Sender: FDA-Public Use
  Company Number: JPI-P-023038

PATIENT
  Age: 39 Year
  Sex: Female
  Weight: 77.11 kg

DRUGS (3)
  1. XYREM [Suspect]
     Indication: CATAPLEXY
     Route: 048
     Dates: start: 20110222
  2. XYREM [Suspect]
     Indication: SOMNOLENCE
     Route: 048
     Dates: start: 20110222
  3. IRBESARTAN [Suspect]
     Indication: HYPERTENSION
     Dates: start: 2011, end: 2011

REACTIONS (6)
  - Hypertension [None]
  - Weight decreased [None]
  - Burning mouth syndrome [None]
  - Sodium retention [None]
  - Pain in extremity [None]
  - Arthralgia [None]
